FAERS Safety Report 25034131 (Version 2)
Quarter: 2025Q1

REPORT INFORMATION
  Report Type: Spontaneous
  Country: US (occurrence: US)
  Receive Date: 20250304
  Receipt Date: 20250314
  Transmission Date: 20250409
  Serious: No
  Sender: TAKEDA
  Company Number: US-TAKEDA-2025TUS021010

PATIENT
  Age: 67 Year
  Weight: 98 kg

DRUGS (2)
  1. FRUZAQLA [Suspect]
     Active Substance: FRUQUINTINIB
     Indication: Product used for unknown indication
  2. FRUZAQLA [Suspect]
     Active Substance: FRUQUINTINIB

REACTIONS (3)
  - Fatigue [Unknown]
  - Hypertension [Not Recovered/Not Resolved]
  - Stomatitis [Not Recovered/Not Resolved]

NARRATIVE: CASE EVENT DATE: 20241119
